FAERS Safety Report 6757030-4 (Version None)
Quarter: 2010Q2

REPORT INFORMATION
  Report Type: 
  Country: None (occurrence: None)
  Receive Date: 20100604
  Receipt Date: 20100525
  Transmission Date: 20101027
  Serious: Yes (Death, Hospitalization, Other)
  Sender: FDA-Public Use
  Company Number: BR-ELI_LILLY_AND_COMPANY-BR201005007147

PATIENT
  Age: 89 Year
  Sex: Female
  Weight: 45 kg

DRUGS (10)
  1. ZYPREXA [Suspect]
     Indication: SCHIZOPHRENIA
     Dosage: 5 MG, 2/D
     Route: 065
     Dates: start: 20080330
  2. NEULEPTIL [Concomitant]
  3. DORMONID [Concomitant]
     Dosage: 7.5 MG, EACH EVENING
     Route: 065
  4. METFORMIN HYDROCHLORIDE [Concomitant]
     Dosage: UNK, UNKNOWN
     Route: 065
  5. CAPTOPRIL [Concomitant]
     Dosage: 150 MG, UNKNOWN
     Route: 065
  6. JANUVIA [Concomitant]
     Dosage: 50 MG, UNKNOWN
     Route: 065
  7. GLYBURIDE [Concomitant]
     Dosage: 5 MG, UNKNOWN
     Route: 065
  8. SUSTRATE [Concomitant]
     Dosage: 30 MG, UNKNOWN
     Route: 065
  9. ASPIRIN [Concomitant]
     Dosage: 100 MG, UNKNOWN
     Route: 065
  10. PLAVIX [Concomitant]
     Dosage: 75 MG, UNKNOWN
     Route: 065

REACTIONS (14)
  - ABNORMAL BEHAVIOUR [None]
  - APATHY [None]
  - ASTHENIA [None]
  - COMA [None]
  - CONVULSION [None]
  - DEATH [None]
  - DYSARTHRIA [None]
  - FALL [None]
  - LOSS OF CONSCIOUSNESS [None]
  - MOVEMENT DISORDER [None]
  - RESPIRATORY RATE INCREASED [None]
  - SALIVA ALTERED [None]
  - SOMNOLENCE [None]
  - SPEECH DISORDER [None]
